FAERS Safety Report 8117860-3 (Version None)
Quarter: 2012Q1

REPORT INFORMATION
  Report Type: 
  Country: None (occurrence: None)
  Receive Date: 20120202
  Receipt Date: 20120123
  Transmission Date: 20120608
  Serious: Yes (Hospitalization, Other)
  Sender: FDA-Public Use
  Company Number: 2012MA001187

PATIENT
  Age: 63 Year
  Sex: Female

DRUGS (4)
  1. WARFARIN SODIUM [Suspect]
     Dosage: 4.5 MG;QD
  2. ACETAMINOPHEN AND CODEINE PHOSPHATE [Suspect]
     Indication: POSTOPERATIVE CARE
     Dosage: 2 G
  3. ACETAMINOPHEN AND CODEINE PHOSPHATE [Suspect]
     Indication: PAIN
     Dosage: 2 G
  4. ACETAMINOPHEN AND CODEINE PHOSPHATE [Suspect]
     Indication: AORTIC VALVE REPLACEMENT
     Dosage: 2 G

REACTIONS (4)
  - INTERNATIONAL NORMALISED RATIO INCREASED [None]
  - POTENTIATING DRUG INTERACTION [None]
  - GINGIVAL BLEEDING [None]
  - INCREASED TENDENCY TO BRUISE [None]
